FAERS Safety Report 7992461-6 (Version None)
Quarter: 2011Q4

REPORT INFORMATION
  Report Type: 
  Country: None (occurrence: None)
  Receive Date: 20111219
  Receipt Date: 20111215
  Transmission Date: 20120403
  Serious: Yes (Death, Hospitalization)
  Sender: FDA-Public Use
  Company Number: PHEH2011US011789

PATIENT
  Sex: Female

DRUGS (1)
  1. RECLAST [Suspect]
     Indication: OSTEOPOROSIS
     Dosage: 50 CC/2.5 MG
     Route: 042
     Dates: start: 20110124, end: 20110124

REACTIONS (5)
  - FAT EMBOLISM [None]
  - HIP FRACTURE [None]
  - FEMUR FRACTURE [None]
  - INCORRECT DOSE ADMINISTERED [None]
  - RESPIRATORY FAILURE [None]
